FAERS Safety Report 21854122 (Version 3)
Quarter: 2025Q4

REPORT INFORMATION
  Report Type: Spontaneous
  Country: EU (occurrence: EU)
  Receive Date: 20230112
  Receipt Date: 20251106
  Transmission Date: 20260118
  Serious: Yes (Hospitalization)
  Sender: PFIZER
  Company Number: EU-BRISTOL-MYERS SQUIBB COMPANY-BMS-2020-097446

PATIENT
  Age: 77 Year
  Sex: Female
  Weight: 70 kg

DRUGS (16)
  1. PACLITAXEL [Suspect]
     Active Substance: PACLITAXEL
     Dosage: 80 MG/M2, WEEKLY
     Route: 042
     Dates: start: 20190509, end: 20190906
  2. TRASTUZUMAB [Suspect]
     Active Substance: TRASTUZUMAB
     Indication: HER2 positive breast cancer
     Dosage: 6 MG/KG, EVERY 3 WEEKS
     Route: 042
     Dates: start: 20190530, end: 20200214
  3. TRASTUZUMAB [Suspect]
     Active Substance: TRASTUZUMAB
     Dosage: 6 MG/KG, EVERY 3 WEEKS
     Route: 042
     Dates: start: 20200702
  4. CAPECITABINE [Suspect]
     Active Substance: CAPECITABINE
     Indication: HER2 positive breast cancer
     Dosage: FREQ:2 WK;2000 MILLIGRAM, Q2WK
     Route: 048
     Dates: start: 20200702, end: 20200723
  5. CAPECITABINE [Suspect]
     Active Substance: CAPECITABINE
     Dosage: 3000 MG, 1X/DAY
     Route: 048
     Dates: start: 20200723, end: 20200810
  6. CAPECITABINE [Suspect]
     Active Substance: CAPECITABINE
     Dosage: 3000 MG, 1X/DAY
     Route: 048
     Dates: start: 20200911, end: 20210301
  7. CAPECITABINE [Suspect]
     Active Substance: CAPECITABINE
     Dosage: 2000 MG, 1X/DAY
     Route: 048
     Dates: start: 20210301
  8. ADO-TRASTUZUMAB EMTANSINE [Suspect]
     Active Substance: ADO-TRASTUZUMAB EMTANSINE
     Indication: HER2 positive breast cancer
     Dosage: 252 MG/KG, EVERY 3 WEEKS
     Route: 042
     Dates: start: 20200310, end: 20200331
  9. ADO-TRASTUZUMAB EMTANSINE [Suspect]
     Active Substance: ADO-TRASTUZUMAB EMTANSINE
     Dosage: 252 MILLIGRAM/KILOGRAM, Q3WK
     Route: 042
     Dates: start: 20200310, end: 20200702
  10. PERTUZUMAB [Suspect]
     Active Substance: PERTUZUMAB
     Indication: HER2 positive breast cancer
     Dosage: 420 MG, EVERY 3 WEEKS
     Route: 042
     Dates: start: 20190530, end: 20200214
  11. LETROZOLE [Suspect]
     Active Substance: LETROZOLE
     Indication: HER2 positive breast cancer
     Dosage: 2.5 MG, 1X/DAY
     Route: 048
     Dates: start: 20191030, end: 20200302
  12. LEVOTHYROXINE SODIUM [Concomitant]
     Active Substance: LEVOTHYROXINE SODIUM
  13. CARVEDILOL [Concomitant]
     Active Substance: CARVEDILOL
     Dates: start: 20200603
  14. CITALOPRAM [Concomitant]
     Active Substance: CITALOPRAM
     Dates: start: 20200715
  15. TAZAROTENE [Concomitant]
     Active Substance: TAZAROTENE
     Dates: start: 20191205, end: 20200420
  16. NEURONTIN [Concomitant]
     Active Substance: GABAPENTIN
     Dates: start: 20190725, end: 20200420

REACTIONS (2)
  - Hypertransaminasaemia [Recovered/Resolved]
  - Diarrhoea [Recovered/Resolved]

NARRATIVE: CASE EVENT DATE: 20200420
